FAERS Safety Report 7194575-X (Version None)
Quarter: 2010Q4

REPORT INFORMATION
  Report Type: 
  Country: None (occurrence: None)
  Receive Date: 20101223
  Receipt Date: 20100915
  Transmission Date: 20110411
  Serious: No
  Sender: FDA-Public Use
  Company Number: US-AMGEN-KDL438444

PATIENT

DRUGS (15)
  1. ENBREL [Suspect]
     Indication: PRODUCT USED FOR UNKNOWN INDICATION
     Dosage: 50 MG, QWK
     Route: 058
  2. MONTELUKAST [Concomitant]
     Dosage: 10 MG, UNK
  3. METHOTREXATE [Concomitant]
     Dosage: 2.5 MG, UNK
  4. CETIRIZINE HYDROCHLORIDE [Concomitant]
     Dosage: 10 MG, UNK
  5. TERAZOSIN HYDROCHLORIDE [Concomitant]
     Dosage: 10 MG, UNK
  6. MOMETASONE FUROATE MONOHYDRATE [Concomitant]
     Dosage: UNK UNK, UNK
  7. HYDROCODONE BITARTRATE [Concomitant]
  8. FOLIC ACID [Concomitant]
     Dosage: 1 MG, UNK
  9. MULTI-VITAMINS [Concomitant]
     Dosage: UNK UNK, UNK
  10. TOCOPHEROL CONCENTRATE CAP [Concomitant]
     Dosage: 400 IU, UNK
  11. ASCORBIC ACID [Concomitant]
     Dosage: 500 MG, UNK
  12. GLUCOSAMINE W/CHONDROITIN SULFATES [Concomitant]
     Dosage: UNK UNK, UNK
  13. CALCIUM WITH VITAMIN D [Concomitant]
     Dosage: UNK UNK, UNK
  14. ASPIRIN [Concomitant]
     Dosage: 81 MG, UNK
  15. BISOPROLOL FUMARATE [Concomitant]
     Dosage: 25 MG, UNK

REACTIONS (1)
  - URINARY TRACT INFECTION [None]
